FAERS Safety Report 5071608-8 (Version None)
Quarter: 2006Q3

REPORT INFORMATION
  Report Type: 
  Country: None (occurrence: None)
  Receive Date: 20060803
  Receipt Date: 20060803
  Transmission Date: 20061208
  Serious: Yes (Hospitalization)
  Sender: FDA-Public Use
  Company Number: None

PATIENT
  Age: 60 Year
  Sex: Male

DRUGS (15)
  1. SIMVASTATIN [Suspect]
     Indication: HYPERLIPIDAEMIA
     Dosage: 80MG  DAILY  PO
     Route: 048
     Dates: end: 20060212
  2. NEORAL [Suspect]
     Indication: PROPHYLAXIS AGAINST TRANSPLANT REJECTION
     Dosage: 125MG  BID  PO
     Route: 048
     Dates: start: 20050607, end: 20060213
  3. TERAZOSIN HCL [Concomitant]
  4. FUROSEMIDE [Concomitant]
  5. WARFARIN SODIUM [Concomitant]
  6. LISINOPRIL [Concomitant]
  7. IRON [Concomitant]
  8. BACTRIM DS [Concomitant]
  9. HYDRALAZINE HCL [Concomitant]
  10. PREDNISONE [Concomitant]
  11. VALCYTE [Concomitant]
  12. MULTI-VITAMIN [Concomitant]
  13. EVEROLIMUS [Concomitant]
  14. CALCIUM WITH VITAMIN D [Concomitant]
  15. INSULIN NPH + REGULAR [Concomitant]

REACTIONS (3)
  - DRUG INTERACTION [None]
  - RENAL FAILURE [None]
  - RHABDOMYOLYSIS [None]
